FAERS Safety Report 10314424 (Version 3)
Quarter: 2014Q4

REPORT INFORMATION
  Report Type: Spontaneous
  Country: US (occurrence: US)
  Receive Date: 20140718
  Receipt Date: 20141125
  Transmission Date: 20150528
  Serious: No
  Sender: FDA-Public Use
  Company Number: US-009507513-1407USA006197

PATIENT
  Sex: Male
  Weight: 79.37 kg

DRUGS (3)
  1. PROPECIA [Suspect]
     Active Substance: FINASTERIDE
     Indication: ANDROGENETIC ALOPECIA
     Dosage: 1 MG, QD
     Route: 048
     Dates: start: 20040603, end: 20110924
  2. PROPECIA [Suspect]
     Active Substance: FINASTERIDE
     Dosage: UNK
     Route: 048
     Dates: start: 2001
  3. PROSCAR [Suspect]
     Active Substance: FINASTERIDE
     Indication: PRODUCT USED FOR UNKNOWN INDICATION
     Dosage: UNK
     Route: 048
     Dates: start: 20111223

REACTIONS (14)
  - Erectile dysfunction [Unknown]
  - Hypertension [Unknown]
  - Prostatic disorder [Unknown]
  - Depression [Unknown]
  - Anxiety [Unknown]
  - Skin papilloma [Unknown]
  - Loss of libido [Unknown]
  - Sexual dysfunction [Not Recovered/Not Resolved]
  - Cardiac murmur [Unknown]
  - Cognitive disorder [Not Recovered/Not Resolved]
  - Irritable bowel syndrome [Unknown]
  - Gastrointestinal disorder [Unknown]
  - Hyperhidrosis [Unknown]
  - Semen volume decreased [Unknown]

NARRATIVE: CASE EVENT DATE: 200912
